FAERS Safety Report 4371773-1 (Version None)
Quarter: 2004Q2

REPORT INFORMATION
  Report Type: 
  Country: None (occurrence: None)
  Receive Date: 20040602
  Receipt Date: 20040518
  Transmission Date: 20050107
  Serious: Yes (Hospitalization)
  Sender: FDA-Public Use
  Company Number: 198410

PATIENT
  Age: 52 Year
  Sex: Male
  Weight: 111.1313 kg

DRUGS (15)
  1. AVONEX [Suspect]
     Indication: MULTIPLE SCLEROSIS
     Dosage: 30 MCG QW; IM
     Route: 030
     Dates: start: 20010101
  2. AVONEX [Suspect]
     Indication: MULTIPLE SCLEROSIS
     Dosage: 30 MCG QW; IM
     Route: 030
  3. TYLENOL [Concomitant]
  4. GLUCOSAMINE W/CHONDROITIN SULFATES [Concomitant]
  5. NIFEDIPINE [Concomitant]
  6. LISINOPRIL [Concomitant]
  7. BACLOFEN [Concomitant]
  8. DETROL [Concomitant]
  9. VITAMIN D [Concomitant]
  10. VITAMIN A [Concomitant]
  11. VITAMIN C [Concomitant]
  12. VITAMIN E [Concomitant]
  13. MULTI-VITAMINS [Concomitant]
  14. BILBERRY [Concomitant]
  15. ASPIRIN [Concomitant]

REACTIONS (9)
  - AMNESIA [None]
  - ANKLE FRACTURE [None]
  - BALANCE DISORDER [None]
  - DISTURBANCE IN ATTENTION [None]
  - FALL [None]
  - OEDEMA PERIPHERAL [None]
  - PAIN IN EXTREMITY [None]
  - SKIN ULCER [None]
  - WOUND SECRETION [None]
